FAERS Safety Report 18774589 (Version 1)
Quarter: 2021Q1

REPORT INFORMATION
  Report Type: Spontaneous
  Country: US (occurrence: US)
  Receive Date: 20210122
  Receipt Date: 20210122
  Transmission Date: 20210419
  Serious: Yes (Death)
  Sender: FDA-Public Use
  Company Number: US-FRESENIUS KABI-FK202100666

PATIENT
  Age: 71 Year
  Sex: Male
  Weight: 74.6 kg

DRUGS (17)
  1. IPRATROPIUM BROMIDE/SALBUTAMOL SULFATE [Concomitant]
     Active Substance: ALBUTEROL SULFATE\IPRATROPIUM BROMIDE
     Indication: CHRONIC OBSTRUCTIVE PULMONARY DISEASE
     Dosage: 0.5?2.5/3 ML, INH.
     Dates: start: 2019, end: 20201203
  2. RETINOL/VITAMIN D NOS [Concomitant]
     Indication: FISTULA
     Route: 061
     Dates: start: 202002, end: 20201203
  3. DEXAMETHASONE. [Concomitant]
     Active Substance: DEXAMETHASONE
     Indication: PROPHYLACTIC CHEMOTHERAPY
     Dosage: ON DAY 2+3
     Dates: start: 20201121, end: 20201203
  4. FLUOROURACIL INJECTION, USP [Suspect]
     Active Substance: FLUOROURACIL
     Indication: PANCREATIC NEUROENDOCRINE TUMOUR METASTATIC
     Dosage: DOSE: 2.4 GM/M2, CONTINUOUS IV INFUSION
     Dates: start: 20201120, end: 20201122
  5. NYSTATIN. [Concomitant]
     Active Substance: NYSTATIN
     Indication: PROPHYLAXIS
  6. GABAPENTIN. [Concomitant]
     Active Substance: GABAPENTIN
     Indication: PAIN
     Dosage: 6 MIL
     Dates: start: 20200612, end: 20201203
  7. NYSTATIN. [Concomitant]
     Active Substance: NYSTATIN
     Indication: SKIN DISORDER
     Dosage: 100,000 U/ML
     Dates: start: 202002, end: 20201203
  8. SODIUM CHLORIDE. [Concomitant]
     Active Substance: SODIUM CHLORIDE
     Indication: INAPPROPRIATE ANTIDIURETIC HORMONE SECRETION
     Dosage: 16?1 TABLET
     Dates: start: 202007, end: 20201203
  9. MELATONIN [Concomitant]
     Active Substance: MELATONIN
     Indication: INSOMNIA
     Dosage: 3 TABLET, HS
     Dates: start: 2020, end: 20201203
  10. RETINOL/VITAMIN D NOS [Concomitant]
     Indication: SKIN DISORDER
  11. DEXAMETHASONE. [Concomitant]
     Active Substance: DEXAMETHASONE
     Indication: PAIN
  12. CALCIUM FOLINATE [Suspect]
     Active Substance: LEUCOVORIN CALCIUM
     Indication: PANCREATIC NEUROENDOCRINE TUMOUR METASTATIC
     Dates: start: 20201120, end: 20201120
  13. NYSTATIN. [Concomitant]
     Active Substance: NYSTATIN
     Indication: FISTULA
     Dosage: 100000 U/GM?A BID
     Route: 061
     Dates: start: 20200729, end: 20201203
  14. MORPHINE [Concomitant]
     Active Substance: MORPHINE
     Indication: PAIN
     Dates: start: 20200806, end: 20201203
  15. SERTRALINE HYDROCHLORIDE. [Concomitant]
     Active Substance: SERTRALINE HYDROCHLORIDE
     Indication: DEPRESSION
     Dates: start: 2020, end: 20201203
  16. IRINOTECAN [Suspect]
     Active Substance: IRINOTECAN
     Indication: PANCREATIC NEUROENDOCRINE TUMOUR METASTATIC
     Dosage: N/A ONLY ONE DOSE GIVEN PRIOR TO DEATH
     Dates: start: 20201120, end: 20201120
  17. FUROSEMIDE. [Concomitant]
     Active Substance: FUROSEMIDE
     Indication: INAPPROPRIATE ANTIDIURETIC HORMONE SECRETION
     Dosage: 1/2 TABLET
     Dates: start: 202007, end: 20201203

REACTIONS (1)
  - Sepsis [Fatal]

NARRATIVE: CASE EVENT DATE: 20201203
